FAERS Safety Report 6558470-9 (Version None)
Quarter: 2010Q1

REPORT INFORMATION
  Report Type: 
  Country: None (occurrence: None)
  Receive Date: 20100129
  Receipt Date: 20100125
  Transmission Date: 20100710
  Serious: Yes (Death, Hospitalization)
  Sender: FDA-Public Use
  Company Number: BE-CELGENEUS-013-50794-09100536

PATIENT
  Sex: Male
  Weight: 73 kg

DRUGS (7)
  1. VIDAZA [Suspect]
     Route: 058
     Dates: start: 20090722, end: 20090916
  2. ZANTAC [Concomitant]
     Indication: PROPHYLAXIS
     Route: 048
     Dates: start: 20081205, end: 20091007
  3. STRUCTOKABIVEN [Concomitant]
     Indication: PARENTERAL NUTRITION
     Route: 051
     Dates: start: 20091002, end: 20091007
  4. CLINOMEL [Concomitant]
     Indication: PARENTERAL NUTRITION
     Route: 051
     Dates: start: 20091007, end: 20091007
  5. CYCLOSPORINE [Concomitant]
     Route: 048
     Dates: start: 20090830, end: 20091001
  6. CYCLOSPORINE [Concomitant]
     Dosage: 150MG TO 220MG
     Route: 048
     Dates: start: 20091001, end: 20091007
  7. VFEND [Concomitant]
     Indication: ASPERGILLOSIS
     Route: 048
     Dates: start: 20090113, end: 20091007

REACTIONS (4)
  - DEATH [None]
  - ENTEROCOCCAL SEPSIS [None]
  - PNEUMONIA [None]
  - SEPSIS [None]
